FAERS Safety Report 6732751-8 (Version None)
Quarter: 2010Q2

REPORT INFORMATION
  Report Type: 
  Country: None (occurrence: None)
  Receive Date: 20100519
  Receipt Date: 20100510
  Transmission Date: 20101027
  Serious: Yes (Death, Other)
  Sender: FDA-Public Use
  Company Number: US-ELI_LILLY_AND_COMPANY-US201005004516

PATIENT

DRUGS (1)
  1. GEMCITABINE HCL [Suspect]
     Indication: ADENOCARCINOMA PANCREAS

REACTIONS (1)
  - PULMONARY EMBOLISM [None]
